FAERS Safety Report 19167152 (Version 5)
Quarter: 2021Q3

REPORT INFORMATION
  Report Type: Report from Study
  Country: DE (occurrence: DE)
  Receive Date: 20210422
  Receipt Date: 20210901
  Transmission Date: 20211014
  Serious: Yes (Life-Threatening, Hospitalization)
  Sender: FDA-Public Use
  Company Number: NVSC2021DE051457

PATIENT
  Age: 45 Year
  Sex: Male
  Weight: 79 kg

DRUGS (27)
  1. CARBOPLATIN. [Suspect]
     Active Substance: CARBOPLATIN
     Indication: NON-HODGKIN^S LYMPHOMA
     Dosage: 613.7_MILLIGRAM_ONCE
     Route: 065
     Dates: start: 20200627
  2. CYTARABINE. [Suspect]
     Active Substance: CYTARABINE
     Indication: NON-HODGKIN^S LYMPHOMA
     Dosage: 8118 MG, BID
     Route: 042
     Dates: start: 20200628
  3. RUXOLITINIB [Suspect]
     Active Substance: RUXOLITINIB
     Indication: IMMUNOSUPPRESSANT DRUG THERAPY
     Dosage: UNK
     Route: 065
     Dates: start: 20210201
  4. LEVOFLOXACIN. [Concomitant]
     Active Substance: LEVOFLOXACIN
     Indication: NEUTROPENIA
     Dosage: UNK
     Route: 065
     Dates: start: 20201017
  5. POSACONAZOL [Concomitant]
     Active Substance: POSACONAZOLE
     Indication: NEUTROPENIA
     Dosage: UNK
     Route: 065
     Dates: start: 20201117
  6. TISAGENLECLEUCEL. [Suspect]
     Active Substance: TISAGENLECLEUCEL
     Indication: NON-HODGKIN^S LYMPHOMA
     Dosage: 0.25_10E8 CELLS
     Route: 042
     Dates: start: 20201002
  7. DEXAMETHASONE. [Suspect]
     Active Substance: DEXAMETHASONE
     Indication: NON-HODGKIN^S LYMPHOMA
     Dosage: 160_MILLIGRAM_EVERYDAY
     Route: 048
     Dates: start: 20200627
  8. RUXOLITINIB [Suspect]
     Active Substance: RUXOLITINIB
     Indication: GRAFT VERSUS HOST DISEASE
  9. ALLOPURINOL. [Concomitant]
     Active Substance: ALLOPURINOL
     Indication: PROPHYLAXIS
     Dosage: UNK
     Route: 065
     Dates: start: 20200721
  10. PREDNISOLON [Suspect]
     Active Substance: PREDNISOLONE
     Indication: GRAFT VERSUS HOST DISEASE
  11. PANTOPRAZOL [Concomitant]
     Active Substance: PANTOPRAZOLE SODIUM
     Indication: PROPHYLAXIS
     Dosage: UNK
     Route: 065
     Dates: start: 20200627
  12. RITUXIMAB. [Suspect]
     Active Substance: RITUXIMAB
     Indication: NON-HODGKIN^S LYMPHOMA
     Dosage: 761_MILLIGRAM_ONCE
     Route: 042
     Dates: start: 20200626
  13. AMPHO?MORONAL [Concomitant]
     Active Substance: AMPHOTERICIN B
     Indication: ANTIFUNGAL PROPHYLAXIS
     Dosage: UNK
     Route: 065
     Dates: start: 20200627
  14. MCP [Concomitant]
     Active Substance: METOCLOPRAMIDE HYDROCHLORIDE
     Indication: PROPHYLAXIS OF NAUSEA AND VOMITING
     Dosage: UNK
     Route: 065
     Dates: start: 20200701
  15. FLUDARABINE [Concomitant]
     Active Substance: FLUDARABINE PHOSPHATE
     Indication: CHEMOTHERAPY
     Dosage: 150 MG, EVERYDAY
     Route: 065
     Dates: start: 20200927, end: 20200929
  16. PREDNISOLON [Suspect]
     Active Substance: PREDNISOLONE
     Indication: IMMUNOSUPPRESSANT DRUG THERAPY
     Dosage: 10 MG PER DAY
     Route: 065
     Dates: start: 20210115
  17. MCP [Concomitant]
     Active Substance: METOCLOPRAMIDE HYDROCHLORIDE
     Indication: PROPHYLAXIS OF NAUSEA AND VOMITING
  18. MESNA. [Suspect]
     Active Substance: MESNA
     Indication: NON-HODGKIN^S LYMPHOMA
     Dosage: 2020_MILLIGRAM_ONCE
     Route: 065
     Dates: start: 20200810
  19. COTRIMOXAZOL [Concomitant]
     Active Substance: SULFAMETHOXAZOLE\TRIMETHOPRIM
     Indication: PROPHYLAXIS
     Dosage: UNK
     Route: 065
     Dates: start: 20200701
  20. BETAISODONA [Concomitant]
     Active Substance: POVIDONE-IODINE
     Indication: PROPHYLAXIS
     Dosage: UNK
     Route: 065
     Dates: start: 20200627
  21. BRENTUXIMAB [Concomitant]
     Active Substance: BRENTUXIMAB VEDOTIN
     Indication: CHEMOTHERAPY
     Dosage: 118_MILLIGRAM_ONCE
     Route: 065
     Dates: start: 20200829, end: 20200829
  22. ETOPOSIDE. [Suspect]
     Active Substance: ETOPOSIDE
     Indication: NON-HODGKIN^S LYMPHOMA
     Dosage: 606_MILLIGRAM_EVERYDAY
     Route: 042
     Dates: start: 20200809
  23. IFOSFAMIDE. [Suspect]
     Active Substance: IFOSFAMIDE
     Indication: NON-HODGKIN^S LYMPHOMA
     Dosage: 10_GRAMS_CONTINUOUS INFUSION 24H
     Route: 041
     Dates: start: 20200810
  24. CICLOSPORIN [Suspect]
     Active Substance: CYCLOSPORINE
     Indication: IMMUNOSUPPRESSANT DRUG THERAPY
     Dosage: 150 MG PER DAY
     Route: 065
     Dates: start: 20210115
  25. CICLOSPORIN [Suspect]
     Active Substance: CYCLOSPORINE
     Indication: GRAFT VERSUS HOST DISEASE
  26. CYCLOPHOSPHAMIDE. [Concomitant]
     Active Substance: CYCLOPHOSPHAMIDE
     Indication: HYPERTENSION
     Dosage: UNK
     Route: 065
     Dates: start: 20200818
  27. ACICLOVIR [Concomitant]
     Active Substance: ACYCLOVIR
     Indication: ANTIVIRAL PROPHYLAXIS
     Dosage: UNK
     Route: 065
     Dates: start: 20200630

REACTIONS (2)
  - BK virus infection [Recovered/Resolved]
  - Cystitis viral [Recovered/Resolved]

NARRATIVE: CASE EVENT DATE: 20210303
